FAERS Safety Report 5933431-9 (Version None)
Quarter: 2008Q4

REPORT INFORMATION
  Report Type: 
  Country: None (occurrence: None)
  Receive Date: 20081023
  Receipt Date: 20081017
  Transmission Date: 20090506
  Serious: Yes (Death, Hospitalization, Other)
  Sender: FDA-Public Use
  Company Number: 2007SP015499

PATIENT
  Age: 68 Year
  Sex: Male
  Weight: 99 kg

DRUGS (9)
  1. TEMODAR [Suspect]
     Indication: GLIOBLASTOMA MULTIFORME
     Dosage: 200 MG/M2;QD;PO
     Route: 048
     Dates: start: 20070719, end: 20070723
  2. IRINOTECAN HYDROCHLORIDE [Suspect]
     Indication: GLIOBLASTOMA MULTIFORME
     Dosage: 125 MG/M2;IV, 80 MG/M2, IV
     Route: 042
     Dates: start: 20070719, end: 20070719
  3. IRINOTECAN HYDROCHLORIDE [Suspect]
     Indication: GLIOBLASTOMA MULTIFORME
     Dosage: 125 MG/M2;IV, 80 MG/M2, IV
     Route: 042
     Dates: start: 20070726, end: 20070726
  4. COUMADIN [Concomitant]
  5. LOTREL [Concomitant]
  6. LASIX [Concomitant]
  7. TOPROL-XL [Concomitant]
  8. LIPITOR [Concomitant]
  9. DECADRON [Suspect]
     Indication: DRUG USE FOR UNKNOWN INDICATION
     Dosage: 4 MG;BID

REACTIONS (13)
  - ADRENAL INSUFFICIENCY [None]
  - ARRHYTHMIA SUPRAVENTRICULAR [None]
  - ATRIAL FIBRILLATION [None]
  - CORONARY ARTERY DISEASE [None]
  - DEHYDRATION [None]
  - DIARRHOEA [None]
  - HYPERGLYCAEMIA [None]
  - HYPOTENSION [None]
  - NEUTROPENIA [None]
  - PANCYTOPENIA [None]
  - RENAL FAILURE ACUTE [None]
  - SEPSIS [None]
  - THROMBOCYTOPENIA [None]
